FAERS Safety Report 7917517-5 (Version None)
Quarter: 2011Q4

REPORT INFORMATION
  Report Type: 
  Country: None (occurrence: None)
  Receive Date: 20111114
  Receipt Date: 20111103
  Transmission Date: 20120403
  Serious: Yes (Death, Hospitalization)
  Sender: FDA-Public Use
  Company Number: B0762002A

PATIENT
  Age: 22 Year
  Sex: Female

DRUGS (2)
  1. TRAMADOL HYDROCHLORIDE [Suspect]
     Indication: PRODUCT USED FOR UNKNOWN INDICATION
  2. PAROXETINE HYDROCHLORIDE [Suspect]
     Indication: PRODUCT USED FOR UNKNOWN INDICATION

REACTIONS (6)
  - MULTIPLE DRUG OVERDOSE [None]
  - INJURY [None]
  - INTENTIONAL SELF-INJURY [None]
  - THERMAL BURN [None]
  - SUDDEN DEATH [None]
  - RESPIRATORY DISORDER [None]
